FAERS Safety Report 20135790 (Version 1)
Quarter: 2021Q4

REPORT INFORMATION
  Report Type: Report from Study
  Country: CA (occurrence: CA)
  Receive Date: 20211201
  Receipt Date: 20211201
  Transmission Date: 20220304
  Serious: Yes (Hospitalization)
  Sender: FDA-Public Use
  Company Number: CA-CATALYST PHARMACEUTICALS, INC-2021CAT00492

PATIENT
  Sex: Male

DRUGS (1)
  1. FIRDAPSE [Suspect]
     Active Substance: AMIFAMPRIDINE PHOSPHATE
     Indication: Myasthenic syndrome
     Dosage: 80 MG
     Route: 048
     Dates: start: 20210628

REACTIONS (6)
  - Renal disorder [Unknown]
  - Sleep disorder [Unknown]
  - Heart rate decreased [Unknown]
  - Chest pain [Unknown]
  - Gastric disorder [Unknown]
  - Weight decreased [Unknown]
